FAERS Safety Report 21246811 (Version 1)
Quarter: 2022Q3

REPORT INFORMATION
  Report Type: Spontaneous
  Country: US (occurrence: US)
  Receive Date: 20220824
  Receipt Date: 20220824
  Transmission Date: 20221027
  Serious: No
  Sender: FDA-Public Use
  Company Number: US-BIOGEN-2022BI01149927

PATIENT
  Sex: Male

DRUGS (4)
  1. TECFIDERA [Suspect]
     Active Substance: DIMETHYL FUMARATE
     Indication: Multiple sclerosis
     Dosage: TAKE  1 CAPSULE (240 MG) BY MOUTH TWICE A DAY.
     Route: 050
  2. ATORVASTATIN CALCIUM [Concomitant]
     Active Substance: ATORVASTATIN CALCIUM
     Route: 050
  3. NEURONTIN [Concomitant]
     Active Substance: GABAPENTIN
     Route: 050
  4. OMEGA 3 [Concomitant]
     Active Substance: CAPSAICIN
     Route: 050

REACTIONS (2)
  - Treatment noncompliance [Recovered/Resolved]
  - Multiple sclerosis relapse [Unknown]
